FAERS Safety Report 25444209 (Version 2)
Quarter: 2025Q3

REPORT INFORMATION
  Report Type: Spontaneous
  Country: EU (occurrence: EU)
  Receive Date: 20250617
  Receipt Date: 20250820
  Transmission Date: 20251021
  Serious: Yes (Death, Other)
  Sender: AUROBINDO
  Company Number: EU-AFSSAPS-CN2025000592

PATIENT
  Age: 82 Year
  Sex: Female

DRUGS (9)
  1. QUETIAPINE [Suspect]
     Active Substance: QUETIAPINE
     Indication: Cognitive disorder
     Dosage: 50 MILLIGRAM, ONCE A DAY
     Route: 048
  2. ZOPICLONE [Suspect]
     Active Substance: ZOPICLONE
     Indication: Insomnia
     Dosage: 7.5 MILLIGRAM, ONCE A DAY
     Route: 048
  3. CLOMIPRAMINE [Suspect]
     Active Substance: CLOMIPRAMINE
     Indication: Cognitive disorder
     Dosage: 150 MILLIGRAM, ONCE A DAY
     Route: 048
  4. ASTEMIZOLE [Suspect]
     Active Substance: ASTEMIZOLE
     Indication: Anxiety
     Dosage: 3 MILLIGRAM, ONCE A DAY (1MG AT 8AM, 12PM, 6PM)
     Route: 048
  5. OXAZEPAM [Suspect]
     Active Substance: OXAZEPAM
     Indication: Agitation
     Dosage: 10 MILLIGRAM, ONCE A DAY
     Route: 048
  6. TRAMADOL HYDROCHLORIDE [Suspect]
     Active Substance: TRAMADOL HYDROCHLORIDE
     Indication: Pain
     Dosage: 75 MILLIGRAM, ONCE A DAY (25MG (10 DROPS) 8H, 12H, 20H)
     Route: 048
  7. RAMIPRIL [Concomitant]
     Active Substance: RAMIPRIL
     Indication: Hypertension
     Dosage: 2.5 MILLIGRAM, ONCE A DAY
     Route: 048
  8. AMLODIPINE [Concomitant]
     Active Substance: AMLODIPINE BESYLATE
     Indication: Hypertension
     Dosage: 5 MILLIGRAM, ONCE A DAY
     Route: 048
  9. ACETAMINOPHEN [Concomitant]
     Active Substance: ACETAMINOPHEN
     Indication: Pain
     Dosage: 3000 MILLIGRAM, ONCE A DAY
     Route: 048

REACTIONS (1)
  - Choking [Fatal]

NARRATIVE: CASE EVENT DATE: 20250502
